FAERS Safety Report 7907982-1 (Version None)
Quarter: 2011Q4

REPORT INFORMATION
  Report Type: 
  Country: None (occurrence: None)
  Receive Date: 20111110
  Receipt Date: 20111109
  Transmission Date: 20120403
  Serious: Yes (Hospitalization)
  Sender: FDA-Public Use
  Company Number: CH-GILEAD-2011-0039869

PATIENT
  Age: 58 Year
  Sex: Female

DRUGS (2)
  1. TRUVADA [Suspect]
     Indication: HIV INFECTION
     Dosage: UNK, QD
     Route: 048
     Dates: end: 20110501
  2. KALETRA [Suspect]
     Indication: HIV INFECTION
     Route: 048

REACTIONS (7)
  - LYMPHOPENIA [None]
  - ANAEMIA [None]
  - HAEMATURIA [None]
  - KIDNEY FIBROSIS [None]
  - ALBUMINURIA [None]
  - DECREASED APPETITE [None]
  - FANCONI SYNDROME ACQUIRED [None]
